FAERS Safety Report 23322679 (Version 1)
Quarter: 2023Q4

REPORT INFORMATION
  Report Type: Spontaneous
  Country: US (occurrence: US)
  Receive Date: 20231220
  Receipt Date: 20231220
  Transmission Date: 20240109
  Serious: Yes (Other)
  Sender: FDA-Public Use
  Company Number: US-Stemline Therapeutics, Inc.-2023ST005168

PATIENT
  Age: 61 Year
  Sex: Female

DRUGS (1)
  1. ORSERDU [Suspect]
     Active Substance: ELACESTRANT
     Indication: Product used for unknown indication
     Dosage: 345MG ONCE DAILY.
     Route: 048
     Dates: start: 20230821

REACTIONS (7)
  - Choking [Unknown]
  - Dysphagia [Unknown]
  - Product size issue [Unknown]
  - Product dose omission issue [Unknown]
  - Musculoskeletal pain [Unknown]
  - Disease progression [Unknown]
  - Back pain [Unknown]
